FAERS Safety Report 5259512-3 (Version None)
Quarter: 2007Q1

REPORT INFORMATION
  Report Type: 
  Country: None (occurrence: None)
  Receive Date: 20061117
  Receipt Date: 20060927
  Transmission Date: 20070707
  Serious: Yes (Other)
  Sender: FDA-Public Use
  Company Number: US-JNJFOC-20060904196

PATIENT
  Age: 74 Year
  Sex: Female
  Weight: 58.0604 kg

DRUGS (2)
  1. LEVAQUIN [Suspect]
     Indication: PHARYNGITIS
     Dosage: 750 MG, IN 1 DAY
     Dates: start: 20060815, end: 20060822
  2. LEVAQUIN [Suspect]
     Indication: SINUSITIS
     Dosage: 750 MG, IN 1 DAY
     Dates: start: 20060815, end: 20060822

REACTIONS (2)
  - TENDONITIS [None]
  - WEIGHT DECREASED [None]
